FAERS Safety Report 10350086 (Version 1)
Quarter: 2014Q3

REPORT INFORMATION
  Report Type: Spontaneous
  Country: US (occurrence: None)
  Receive Date: 20140728
  Receipt Date: 20140728
  Transmission Date: 20150326
  Serious: Yes (Death, Life-Threatening, Hospitalization)
  Sender: FDA-Public Use
  Company Number: UTC-046787

PATIENT
  Age: 50 Year
  Sex: Female
  Weight: 67.1 kg

DRUGS (2)
  1. ADCIRCA (TADALAFIL) UNKNOWN [Concomitant]
  2. TYVASO [Suspect]
     Active Substance: TREPROSTINIL
     Indication: PULMONARY ARTERIAL HYPERTENSION
     Route: 055
     Dates: start: 20100527

REACTIONS (6)
  - Blood potassium decreased [None]
  - Hypovolaemia [None]
  - Hyperglycaemic hyperosmolar nonketotic syndrome [None]
  - Right ventricular failure [None]
  - Renal failure acute [None]
  - Blood sodium decreased [None]

NARRATIVE: CASE EVENT DATE: 20140429
